FAERS Safety Report 6999783 (Version 4)
Quarter: 2014Q2

REPORT INFORMATION
  Report Type: Spontaneous
  Country: US (occurrence: US)
  Receive Date: 20090521
  Receipt Date: 20140424
  Transmission Date: 20141212
  Serious: Yes (Hospitalization, Other)
  Sender: FDA-Public Use
  Company Number: US-ALEXION-A200900387

PATIENT
  Sex: Female

DRUGS (5)
  1. SOLIRIS [Suspect]
     Indication: PAROXYSMAL NOCTURNAL HAEMOGLOBINURIA
     Dosage: 600 MG, QW
     Route: 042
     Dates: start: 20081218, end: 20090107
  2. SOLIRIS [Suspect]
     Dosage: 900 MG, Q2W
     Route: 042
     Dates: start: 200901
  3. OXYCONTIN [Concomitant]
     Indication: MUSCLE SPASMS
     Dosage: 20 MG, Q12H
     Route: 048
  4. OXYCONTIN [Concomitant]
     Indication: ARTHRALGIA
  5. OXYCONTIN [Concomitant]
     Indication: PAIN

REACTIONS (3)
  - Aplastic anaemia [Recovered/Resolved]
  - Muscle spasms [Unknown]
  - Arthralgia [Unknown]
